FAERS Safety Report 15296189 (Version 2)
Quarter: 2018Q4

REPORT INFORMATION
  Report Type: Spontaneous
  Country: US (occurrence: US)
  Receive Date: 20180820
  Receipt Date: 20181011
  Transmission Date: 20190204
  Serious: No
  Sender: FDA-Public Use
  Company Number: US-BAUSCH-BL-2018-020711

PATIENT
  Age: 92 Year
  Sex: Male
  Weight: 83.99 kg

DRUGS (10)
  1. PRESERVISION AREDS 2 FORMULA SOFT GELS [Suspect]
     Active Substance: MINERALS\VITAMINS
     Indication: MACULAR DEGENERATION
     Dosage: SEVERAL YEARS AGO
     Route: 048
  2. ASPIRIN. [Concomitant]
     Active Substance: ASPIRIN
     Indication: PRODUCT USED FOR UNKNOWN INDICATION
     Route: 065
  3. CARVEDILOL. [Concomitant]
     Active Substance: CARVEDILOL
     Indication: PRODUCT USED FOR UNKNOWN INDICATION
     Route: 065
  4. LATANOPROST. [Concomitant]
     Active Substance: LATANOPROST
     Indication: EYE DISORDER
     Dosage: STARTED 7 TO 8 YEARS AGO
     Route: 047
  5. LISINOPRIL. [Concomitant]
     Active Substance: LISINOPRIL
     Indication: PRODUCT USED FOR UNKNOWN INDICATION
     Route: 065
  6. SIMVASTATIN. [Concomitant]
     Active Substance: SIMVASTATIN
     Indication: PRODUCT USED FOR UNKNOWN INDICATION
     Route: 065
  7. LATANOPROST. [Concomitant]
     Active Substance: LATANOPROST
     Dosage: 1 DROP INTO EACH EYE AT NIGHT
     Route: 047
  8. FINASTERIDE. [Concomitant]
     Active Substance: FINASTERIDE
     Indication: PRODUCT USED FOR UNKNOWN INDICATION
     Route: 065
  9. MELATONIN [Concomitant]
     Active Substance: MELATONIN
     Indication: PRODUCT USED FOR UNKNOWN INDICATION
     Route: 065
  10. TAMSULOSIN [Concomitant]
     Active Substance: TAMSULOSIN
     Indication: PRODUCT USED FOR UNKNOWN INDICATION
     Route: 065

REACTIONS (3)
  - Foreign body in gastrointestinal tract [Recovered/Resolved]
  - Secretion discharge [Recovered/Resolved]
  - Product use complaint [Recovered/Resolved]

NARRATIVE: CASE EVENT DATE: 20180730
